FAERS Safety Report 5162121-8 (Version None)
Quarter: 2006Q4

REPORT INFORMATION
  Report Type: 
  Country: None (occurrence: None)
  Receive Date: 20061121
  Receipt Date: 20061110
  Transmission Date: 20070319
  Serious: Yes (Other)
  Sender: FDA-Public Use
  Company Number: 2006-02869

PATIENT
  Age: 81 Year
  Sex: Male
  Weight: 68 kg

DRUGS (2)
  1. VELCADE [Suspect]
     Indication: MULTIPLE MYELOMA
     Dosage: 2.00 MG, UNK, INTRAVENOUS
     Route: 042
     Dates: start: 20060904
  2. VERGENTAN (ALIZAPRIDE HYDROCHLORIDE) AMPOULE [Concomitant]

REACTIONS (2)
  - PERIORBITAL OEDEMA [None]
  - SKIN NODULE [None]
